FAERS Safety Report 17548997 (Version 1)
Quarter: 2020Q1

REPORT INFORMATION
  Report Type: Spontaneous
  Country: GB (occurrence: GB)
  Receive Date: 20200317
  Receipt Date: 20200317
  Transmission Date: 20200409
  Serious: Yes (Life-Threatening)
  Sender: FDA-Public Use
  Company Number: GB-TEVA-2020-GB-1201684

PATIENT
  Age: 83 Year
  Sex: Male
  Weight: 67 kg

DRUGS (8)
  1. CLARITHROMYCIN. [Suspect]
     Active Substance: CLARITHROMYCIN
     Indication: POSTOPERATIVE WOUND INFECTION
     Dosage: 500 MG
     Route: 065
     Dates: start: 20200207
  2. FINASTERIDE. [Concomitant]
     Active Substance: FINASTERIDE
     Dosage: 1 DOSAGE FORMS
     Dates: start: 20190508
  3. PRAVASTATIN. [Concomitant]
     Active Substance: PRAVASTATIN
     Dosage: AT NIGHT, 1 DOSAGE FORMS
     Dates: start: 20190508
  4. NITROFURANTOIN. [Concomitant]
     Active Substance: NITROFURANTOIN
     Dosage: 2 DOSAGE FORMS
     Dates: start: 20191230, end: 20200106
  5. MOVICOL [Concomitant]
     Active Substance: POLYETHYLENE GLYCOL 3350\POTASSIUM CHLORIDE\SODIUM BICARBONATE\SODIUM CHLORIDE
     Dosage: 1 DOSAGE FORMS
     Dates: start: 20191021
  6. COCODAMOL [Concomitant]
     Active Substance: ACETAMINOPHEN\CODEINE PHOSPHATE
     Dates: start: 20190508
  7. TEARS NATURALE FREE [Concomitant]
     Active Substance: DEXTRAN 70\HYPROMELLOSE 2910 (4000 MPA.S)
     Dosage: 1 GTT
     Dates: start: 20190508
  8. AMOROLFINE [Concomitant]
     Active Substance: AMOROLFINE
     Dosage: APPLY ONCE OR TWICE A WEEK TO AFFECTED NAILS
     Dates: start: 20191216, end: 20200115

REACTIONS (1)
  - Angioedema [Recovered/Resolved]

NARRATIVE: CASE EVENT DATE: 20200208
